FAERS Safety Report 18013845 (Version 1)
Quarter: 2020Q3

REPORT INFORMATION
  Report Type: Spontaneous
  Country: US (occurrence: US)
  Receive Date: 20200712
  Receipt Date: 20200712
  Transmission Date: 20201103
  Serious: Yes (Other)
  Sender: FDA-Public Use
  Company Number: None

PATIENT
  Age: 88 Year
  Sex: Male
  Weight: 84.6 kg

DRUGS (3)
  1. PADCEV [Suspect]
     Active Substance: ENFORTUMAB VEDOTIN-EJFV
     Indication: BLADDER CANCER
     Dosage: ?          OTHER FREQUENCY:ONCE A WEEK;?
     Route: 042
     Dates: start: 20200707
  2. HYDROCODONE, OTHERS [Concomitant]
  3. GABAPENTIN. [Concomitant]
     Active Substance: GABAPENTIN

REACTIONS (2)
  - Onychomadesis [None]
  - Nail bed bleeding [None]

NARRATIVE: CASE EVENT DATE: 20200711
